FAERS Safety Report 4672801-6 (Version None)
Quarter: 2005Q2

REPORT INFORMATION
  Report Type: 
  Country: None (occurrence: None)
  Receive Date: 20050523
  Receipt Date: 20050510
  Transmission Date: 20051028
  Serious: Yes (Hospitalization, Disabling, Other)
  Sender: FDA-Public Use
  Company Number: BRO-007728

PATIENT
  Age: 59 Year
  Sex: Female

DRUGS (6)
  1. IOPAMIDOL-300 [Suspect]
     Indication: ARTHROGRAM
     Dosage: 0.5 ML, IR/A FEW SECS
     Dates: start: 20040804, end: 20040804
  2. XYLOCAINE HYDROCHLORIDE, (LIDOCAINE HYDROCHLORIDE) [Concomitant]
  3. HYDROCORTANCYL, (PREDNISOLONE) [Concomitant]
  4. MIGPRIV [Concomitant]
  5. DOLIPRANE, (PARACETAMOL) [Concomitant]
  6. VIDORA, (INDORAMIN) [Concomitant]

REACTIONS (18)
  - ANGIONEUROTIC OEDEMA [None]
  - BLOOD ELECTROLYTES INCREASED [None]
  - BRADYCARDIA [None]
  - CSF IMMUNOGLOBULIN INCREASED [None]
  - CSF PROTEIN INCREASED [None]
  - DYSAESTHESIA [None]
  - DYSPNOEA [None]
  - HEPATITIS [None]
  - HYPOTENSION [None]
  - MALAISE [None]
  - MYELITIS [None]
  - NERVOUS SYSTEM DISORDER [None]
  - PAIN [None]
  - QUADRIPLEGIA [None]
  - SPINAL CORD INJURY [None]
  - SPINAL CORD OEDEMA [None]
  - SYNCOPE VASOVAGAL [None]
  - VOMITING [None]
